FAERS Safety Report 10085715 (Version 2)
Quarter: 2014Q2

REPORT INFORMATION
  Report Type: Spontaneous
  Country: US (occurrence: None)
  Receive Date: 20140416
  Receipt Date: 20140429
  Transmission Date: 20141212
  Serious: Yes (Other)
  Sender: FDA-Public Use
  Company Number: ADR-2014-00607

PATIENT
  Age: 48 Year
  Sex: Male

DRUGS (2)
  1. BACLOFEN [Suspect]
     Indication: MUSCLE SPASTICITY
  2. BACLOFEN [Suspect]

REACTIONS (6)
  - Asthenia [None]
  - Feeling drunk [None]
  - Pain [None]
  - Incorrect dose administered [None]
  - Overdose [None]
  - Gastric disorder [None]
